FAERS Safety Report 7393386-X (Version None)
Quarter: 2011Q2

REPORT INFORMATION
  Report Type: 
  Country: None (occurrence: None)
  Receive Date: 20110405
  Receipt Date: 20110322
  Transmission Date: 20111010
  Serious: Yes (Life-Threatening, Other)
  Sender: FDA-Public Use
  Company Number: FR-CELGENEUS-056-21880-08110750

PATIENT
  Sex: Male

DRUGS (9)
  1. OFLOCET [Concomitant]
     Route: 065
     Dates: start: 20081001
  2. PYOSTACINE [Concomitant]
     Route: 065
  3. RIFAMPICIN [Concomitant]
     Route: 065
  4. AUGMENTIN [Concomitant]
     Route: 065
     Dates: start: 20081001
  5. REVLIMID [Suspect]
     Route: 048
     Dates: start: 20060401
  6. REVLIMID [Suspect]
     Dosage: 10 MILLIGRAM
     Route: 048
     Dates: end: 20080901
  7. AUGMENTIN [Concomitant]
     Route: 065
     Dates: start: 20081101
  8. REVLIMID [Suspect]
     Indication: MULTIPLE MYELOMA
     Dosage: 15 MILLIGRAM
     Route: 048
     Dates: start: 20060727, end: 20081003
  9. REVLIMID [Suspect]
     Dosage: 10 MILLIGRAM
     Route: 048
     Dates: start: 20080801

REACTIONS (1)
  - HODGKIN'S DISEASE [None]
